FAERS Safety Report 6372542-3 (Version None)
Quarter: 2009Q3

REPORT INFORMATION
  Report Type: 
  Country: None (occurrence: None)
  Receive Date: 20090924
  Receipt Date: 20090514
  Transmission Date: 20100115
  Serious: No
  Sender: FDA-Public Use
  Company Number: US-ASTRAZENECA-2008UW20258

PATIENT
  Sex: Female
  Weight: 86.2 kg

DRUGS (5)
  1. SEROQUEL [Suspect]
     Indication: DEPRESSION
     Route: 048
  2. SEROQUEL [Suspect]
     Indication: TACHYPHRENIA
     Route: 048
  3. PROZAC [Concomitant]
  4. VALIUM [Concomitant]
  5. RESTORIL [Concomitant]

REACTIONS (3)
  - HEPATIC STEATOSIS [None]
  - PANCREATIC DISORDER [None]
  - TYPE 2 DIABETES MELLITUS [None]
